FAERS Safety Report 23938681 (Version 2)
Quarter: 2024Q2

REPORT INFORMATION
  Report Type: Spontaneous
  Country: JP (occurrence: JP)
  Receive Date: 20240604
  Receipt Date: 20240612
  Transmission Date: 20240716
  Serious: Yes (Hospitalization, Other)
  Sender: FDA-Public Use
  Company Number: JP-BRISTOL-MYERS SQUIBB COMPANY-BMS-2017-030039

PATIENT
  Age: 60 Year
  Sex: Female
  Weight: 55 kg

DRUGS (2)
  1. OPDIVO [Suspect]
     Active Substance: NIVOLUMAB
     Indication: Malignant melanoma
     Dosage: 3 MG/KG, UNK
     Route: 041
     Dates: start: 20160721, end: 20160721
  2. OPDIVO [Suspect]
     Active Substance: NIVOLUMAB
     Dosage: (2016/8/12,9/2,9/23,10/14,11/4,11/25,12/16,2017/1/6)
     Route: 041
     Dates: start: 20160812, end: 20170106

REACTIONS (7)
  - Type 1 diabetes mellitus [Recovered/Resolved with Sequelae]
  - Diabetic ketoacidosis [Unknown]
  - Inappropriate schedule of product administration [Unknown]
  - Thyroid disorder [Unknown]
  - Lichen planus [Recovered/Resolved]
  - Hypothalamo-pituitary disorder [Unknown]
  - Thyroiditis [Unknown]

NARRATIVE: CASE EVENT DATE: 20170101
